FAERS Safety Report 6650270-4 (Version None)
Quarter: 2010Q1

REPORT INFORMATION
  Report Type: 
  Country: None (occurrence: None)
  Receive Date: 20100322
  Receipt Date: 20100305
  Transmission Date: 20100710
  Serious: Yes (Other)
  Sender: FDA-Public Use
  Company Number: AUR-APL-2010-00672

PATIENT
  Age: 22 Year
  Sex: Male

DRUGS (2)
  1. RIBAVIRIN [Suspect]
     Indication: HEPATITIS C
     Dosage: 1000MG-QD
  2. PEG-INTRON [Suspect]
     Indication: HEPATITIS C
     Dosage: 1.0UG/OIW

REACTIONS (5)
  - ARTHRALGIA [None]
  - HAEMOLYTIC ANAEMIA [None]
  - HYPERBILIRUBINAEMIA [None]
  - INFLUENZA LIKE ILLNESS [None]
  - LEUKOPENIA [None]
